FAERS Safety Report 14507564 (Version 10)
Quarter: 2019Q4

REPORT INFORMATION
  Report Type: Report from Study
  Country: US (occurrence: US)
  Receive Date: 20180208
  Receipt Date: 20191230
  Transmission Date: 20200122
  Serious: Yes (Hospitalization)
  Sender: FDA-Public Use
  Company Number: US-ACTELION-A-NJ2018-166913

PATIENT
  Age: 76 Year
  Sex: Female
  Weight: 62.13 kg

DRUGS (10)
  1. DILTIAZEM. [Concomitant]
     Active Substance: DILTIAZEM
  2. UPTRAVI [Suspect]
     Active Substance: SELEXIPAG
     Indication: PULMONARY ARTERIAL HYPERTENSION
     Dosage: 1600 MCG, BID
     Route: 048
     Dates: start: 20180112
  3. UPTRAVI [Suspect]
     Active Substance: SELEXIPAG
     Dosage: 1400 MCG, BID
     Route: 048
     Dates: start: 20180112
  4. UPTRAVI [Suspect]
     Active Substance: SELEXIPAG
     Dosage: 600 MCG, BID
     Route: 048
  5. ADEMPAS [Concomitant]
     Active Substance: RIOCIGUAT
  6. UPTRAVI [Suspect]
     Active Substance: SELEXIPAG
     Dosage: 800 MCG, BID
     Route: 048
  7. AMBRISENTAN [Suspect]
     Active Substance: AMBRISENTAN
     Indication: PULMONARY HYPERTENSION
     Dosage: 10 MG, QD
     Route: 065
     Dates: start: 20160628
  8. UPTRAVI [Suspect]
     Active Substance: SELEXIPAG
     Dosage: 1200 MCG, BID
     Route: 048
  9. ADCIRCA [Concomitant]
     Active Substance: TADALAFIL
  10. UPTRAVI [Suspect]
     Active Substance: SELEXIPAG
     Dosage: 1000 MCG, BID
     Route: 048
     Dates: start: 20180112

REACTIONS (27)
  - Dyspnoea [Unknown]
  - Hepatic lesion [Unknown]
  - Liver disorder [Unknown]
  - Lip swelling [Unknown]
  - Nasopharyngitis [Not Recovered/Not Resolved]
  - Haematochezia [Unknown]
  - Gastric haemorrhage [Unknown]
  - Hepatic haemorrhage [Unknown]
  - Constipation [Unknown]
  - Heart rate irregular [Unknown]
  - Nausea [Recovering/Resolving]
  - Sinusitis [Unknown]
  - Epistaxis [Unknown]
  - Decreased appetite [Unknown]
  - Nasal congestion [Unknown]
  - Anaemia [Unknown]
  - Transfusion [Unknown]
  - Thrombosis [Unknown]
  - Dyspnoea exertional [Recovering/Resolving]
  - Fluid retention [Unknown]
  - Meniscus injury [Unknown]
  - Bronchitis [Unknown]
  - Unevaluable event [Unknown]
  - Pneumonia [Unknown]
  - Headache [Recovering/Resolving]
  - Malaise [Unknown]
  - Oxygen saturation decreased [Recovering/Resolving]

NARRATIVE: CASE EVENT DATE: 20180122
